FAERS Safety Report 26005248 (Version 1)
Quarter: 2025Q4

REPORT INFORMATION
  Report Type: Spontaneous
  Country: US (occurrence: US)
  Receive Date: 20251106
  Receipt Date: 20251106
  Transmission Date: 20260118
  Serious: No
  Sender: CURRAX PHARMACEUTICALS
  Company Number: US-CURRAX PHARMACEUTICALS LLC-US-2025CUR001740

PATIENT

DRUGS (1)
  1. CONTRAVE [Suspect]
     Active Substance: BUPROPION HYDROCHLORIDE\NALTREXONE HYDROCHLORIDE
     Indication: Weight control
     Dosage: STRENGTH: 8/90 MG, TOOK ONLY 1 OUT OF A BOTTLE OF 120,UNKNOWN FREQUENCY
     Route: 065

REACTIONS (5)
  - Gait disturbance [Unknown]
  - Thinking abnormal [Unknown]
  - Impaired work ability [Unknown]
  - Impaired driving ability [Unknown]
  - Ill-defined disorder [Unknown]
